FAERS Safety Report 6977208-4 (Version None)
Quarter: 2010Q3

REPORT INFORMATION
  Report Type: 
  Country: None (occurrence: None)
  Receive Date: 20100910
  Receipt Date: 20100903
  Transmission Date: 20110219
  Serious: Yes (Life-Threatening, Hospitalization)
  Sender: FDA-Public Use
  Company Number: US-JNJFOC-20100902062

PATIENT
  Sex: Male
  Weight: 108 kg

DRUGS (2)
  1. DOXIL [Suspect]
     Indication: BURKITT'S LYMPHOMA
     Route: 042
  2. RITUXAN [Suspect]
     Indication: BURKITT'S LYMPHOMA
     Route: 065

REACTIONS (10)
  - BACTERIAL TEST POSITIVE [None]
  - CONDITION AGGRAVATED [None]
  - CONSTIPATION [None]
  - DYSPNOEA [None]
  - NEUTROPENIC INFECTION [None]
  - PANCYTOPENIA [None]
  - PERIRECTAL ABSCESS [None]
  - RECTAL FISSURE [None]
  - SEPSIS [None]
  - SEPTIC SHOCK [None]
